FAERS Safety Report 5960787-3 (Version None)
Quarter: 2008Q4

REPORT INFORMATION
  Report Type: 
  Country: None (occurrence: None)
  Receive Date: 20081120
  Receipt Date: 20081113
  Transmission Date: 20090506
  Serious: Yes (Other)
  Sender: FDA-Public Use
  Company Number: JP-PFIZER INC-2008096870

PATIENT
  Age: 90 Year
  Sex: Female

DRUGS (4)
  1. ATARAX [Suspect]
     Dosage: DAILY DOSE:25MG
     Route: 042
     Dates: start: 20081109, end: 20081110
  2. UNASYN [Concomitant]
     Route: 042
     Dates: start: 20081105, end: 20081108
  3. MEROPEN [Concomitant]
  4. GRAMALIL [Concomitant]

REACTIONS (1)
  - URINARY RETENTION [None]
